FAERS Safety Report 7685440-X (Version None)
Quarter: 2011Q3

REPORT INFORMATION
  Report Type: 
  Country: None (occurrence: None)
  Receive Date: 20110816
  Receipt Date: 20110810
  Transmission Date: 20111222
  Serious: Yes (Hospitalization, Congenital Anomaly)
  Sender: FDA-Public Use
  Company Number: US-ABBOTT-10P-163-0650678-00

PATIENT
  Sex: Male
  Weight: 3.8 kg

DRUGS (1)
  1. HUMIRA [Suspect]
     Indication: MATERNAL EXPOSURE DURING PREGNANCY
     Route: 064

REACTIONS (8)
  - RESPIRATORY DISORDER [None]
  - INFLUENZA [None]
  - CONGENITAL CHOROID PLEXUS CYST [None]
  - STAPHYLOCOCCAL ABSCESS [None]
  - STAPHYLOCOCCAL INFECTION [None]
  - MATERNAL EXPOSURE DURING PREGNANCY [None]
  - PYREXIA [None]
  - MASS [None]
